FAERS Safety Report 6742455-3 (Version None)
Quarter: 2010Q2

REPORT INFORMATION
  Report Type: 
  Country: None (occurrence: None)
  Receive Date: 20100526
  Receipt Date: 20100521
  Transmission Date: 20101027
  Serious: Yes (Hospitalization)
  Sender: FDA-Public Use
  Company Number: CR-ELI_LILLY_AND_COMPANY-CR201003006831

PATIENT
  Sex: Male
  Weight: 94 kg

DRUGS (9)
  1. PRASUGREL HYDROCHLORIDE [Suspect]
     Indication: ACUTE CORONARY SYNDROME
     Dosage: UNK, UNK
     Route: 048
     Dates: start: 20090521, end: 20100322
  2. PRASUGREL HYDROCHLORIDE [Suspect]
     Dates: start: 20100327
  3. ASPIRIN [Concomitant]
     Dosage: 100 MG, DAILY (1/D)
     Dates: start: 20090507, end: 20090520
  4. ASPIRIN [Concomitant]
     Dosage: 100 MG, DAILY (1/D)
     Dates: start: 20090520
  5. FAMOTIDINE [Concomitant]
     Indication: GASTRITIS
     Dates: start: 20070101
  6. AMLODIPINE [Concomitant]
     Indication: HYPERTENSION
     Dosage: UNK, UNK
     Dates: start: 20070401
  7. ATENOLOL [Concomitant]
     Indication: HYPERTENSION
     Dosage: UNK, UNK
     Dates: start: 20090818
  8. LOVASTATIN [Concomitant]
     Indication: HYPERLIPIDAEMIA
     Dosage: UNK, UNK
     Dates: start: 20070101
  9. IRBESARTAN [Concomitant]
     Indication: HYPERTENSION
     Dates: start: 20091023

REACTIONS (1)
  - ANGINA PECTORIS [None]
